FAERS Safety Report 6266828-0 (Version None)
Quarter: 2009Q3

REPORT INFORMATION
  Report Type: 
  Country: None (occurrence: None)
  Receive Date: 20090714
  Receipt Date: 20090615
  Transmission Date: 20100115
  Serious: No
  Sender: FDA-Public Use
  Company Number: ES-JNJFOC-20090605160

PATIENT
  Age: 29 Year
  Sex: Male

DRUGS (2)
  1. LOPERAMIDE HYDROCHLORIDE [Suspect]
     Route: 065
  2. LOPERAMIDE HYDROCHLORIDE [Suspect]
     Indication: DIARRHOEA INFECTIOUS
     Route: 065

REACTIONS (1)
  - URTICARIA [None]
